FAERS Safety Report 6255370-9 (Version None)
Quarter: 2009Q3

REPORT INFORMATION
  Report Type: 
  Country: None (occurrence: None)
  Receive Date: 20090702
  Receipt Date: 20090624
  Transmission Date: 20100115
  Serious: No
  Sender: FDA-Public Use
  Company Number: US-AMGEN-QUU351661

PATIENT
  Sex: Male

DRUGS (3)
  1. ENBREL [Suspect]
     Indication: PSORIATIC ARTHROPATHY
     Route: 058
  2. ENBREL [Suspect]
     Indication: PSORIASIS
  3. PREDNISONE [Concomitant]

REACTIONS (6)
  - DECREASED APPETITE [None]
  - ERYTHEMA [None]
  - MOBILITY DECREASED [None]
  - MUSCLE RIGIDITY [None]
  - PRURITUS [None]
  - TENDERNESS [None]
